FAERS Safety Report 17273472 (Version 1)
Quarter: 2020Q1

REPORT INFORMATION
  Report Type: Spontaneous
  Country: US (occurrence: US)
  Receive Date: 20200115
  Receipt Date: 20200115
  Transmission Date: 20200409
  Serious: Yes (Death, Life-Threatening)
  Sender: FDA-Public Use
  Company Number: US-SYNEX-T202000135

PATIENT
  Age: 49 Year
  Sex: Female

DRUGS (2)
  1. INOMAX [Suspect]
     Active Substance: NITRIC OXIDE
     Indication: PULMONARY HYPERTENSION
     Dosage: 40 PPM PER INHALATION
     Route: 055
  2. INOMAX [Suspect]
     Active Substance: NITRIC OXIDE
     Indication: ATRIAL SEPTAL DEFECT

REACTIONS (3)
  - Product use issue [Unknown]
  - Cardiac arrest [Fatal]
  - Hypoxia [Unknown]
